FAERS Safety Report 4616786-7 (Version None)
Quarter: 2005Q1

REPORT INFORMATION
  Report Type: 
  Country: None (occurrence: None)
  Receive Date: 20050321
  Receipt Date: 20050305
  Transmission Date: 20050727
  Serious: Yes (Life-Threatening)
  Sender: FDA-Public Use
  Company Number: PHBS2005TR03270

PATIENT
  Age: 77 Year
  Sex: Female

DRUGS (1)
  1. VISUDYNE [Suspect]
     Dates: start: 20050305, end: 20050305

REACTIONS (2)
  - CARDIAC ARREST [None]
  - SYNCOPE VASOVAGAL [None]
